FAERS Safety Report 5141854-3 (Version None)
Quarter: 2006Q4

REPORT INFORMATION
  Report Type: 
  Country: None (occurrence: None)
  Receive Date: 20061027
  Receipt Date: 20061011
  Transmission Date: 20070319
  Serious: Yes (Other)
  Sender: FDA-Public Use
  Company Number: DE200610002653

PATIENT
  Age: 69 Year
  Sex: Male

DRUGS (7)
  1. CYMBALTA [Suspect]
     Indication: DIABETIC NEUROPATHY
     Dosage: 60 MG DAILY (1/D) ORAL
     Route: 048
     Dates: start: 20060708, end: 20060716
  2. AVANDIA [Concomitant]
  3. MANURIL (HYDROCHLOROTHIAZIDE) [Concomitant]
  4. PLAVIX [Concomitant]
  5. METOPROLOL TARTRATE [Concomitant]
  6. ACETYLSALICYLIC ACID SRT [Concomitant]
  7. ENALAPRIL MALEATE [Concomitant]

REACTIONS (1)
  - DERMATITIS ALLERGIC [None]
